FAERS Safety Report 18924974 (Version 3)
Quarter: 2023Q4

REPORT INFORMATION
  Report Type: Spontaneous
  Country: US (occurrence: US)
  Receive Date: 20210222
  Receipt Date: 20231005
  Transmission Date: 20240109
  Serious: No
  Sender: FDA-Public Use
  Company Number: US-PFIZER INC-2021148251

PATIENT
  Age: 67 Year
  Sex: Female

DRUGS (1)
  1. XELJANZ [Suspect]
     Active Substance: TOFACITINIB CITRATE
     Dosage: 10 MG, DAILY (XELJANZ 5MG 2 TABLETS DAILY)

REACTIONS (4)
  - Memory impairment [Unknown]
  - Pain [Unknown]
  - Arthritis [Unknown]
  - Joint swelling [Unknown]
